FAERS Safety Report 9247894 (Version 2)
Quarter: 2013Q2

REPORT INFORMATION
  Report Type: Spontaneous
  Country: BR (occurrence: BR)
  Receive Date: 20130423
  Receipt Date: 20130614
  Transmission Date: 20140414
  Serious: Yes (Other)
  Sender: FDA-Public Use
  Company Number: BR-PFIZER INC-2013114369

PATIENT
  Age: 61 Year
  Sex: Male

DRUGS (6)
  1. CELEBRA [Suspect]
     Indication: SPINAL PAIN
     Dosage: 200 MG, 2X/DAY (EVERY 12 HOURS)
     Route: 048
     Dates: start: 20130304, end: 20130306
  2. CELEBRA [Suspect]
     Indication: BACK PAIN
  3. LOSARTAN POTASSIUM [Concomitant]
     Dosage: UNK
  4. LEVOID [Concomitant]
     Dosage: UNK
  5. ATORVASTATIN [Concomitant]
     Indication: BLOOD CHOLESTEROL INCREASED
     Dosage: UNK
  6. AAS [Concomitant]
     Dosage: UNK

REACTIONS (14)
  - Hypertensive crisis [Recovered/Resolved]
  - Constipation [Recovered/Resolved]
  - Blood pressure decreased [Recovered/Resolved]
  - Feeling abnormal [Recovered/Resolved]
  - Hyperhidrosis [Recovered/Resolved]
  - Insomnia [Recovered/Resolved]
  - Fatigue [Recovered/Resolved]
  - Decreased appetite [Recovered/Resolved]
  - Malaise [Recovered/Resolved]
  - Diarrhoea [Recovered/Resolved]
  - Drug ineffective [Unknown]
  - Gastrointestinal tract irritation [Recovered/Resolved]
  - Red blood cell sedimentation rate increased [Unknown]
  - Antinuclear antibody positive [Unknown]
